FAERS Safety Report 7372780-7 (Version None)
Quarter: 2011Q1

REPORT INFORMATION
  Report Type: 
  Country: None (occurrence: None)
  Receive Date: 20110324
  Receipt Date: 20110315
  Transmission Date: 20110831
  Serious: Yes (Hospitalization)
  Sender: FDA-Public Use
  Company Number: NL-B.I. PHARMACEUTICALS,INC./RIDGEFIELD-2011-NL-00098NL

PATIENT
  Sex: Female

DRUGS (4)
  1. SIFROL RETARD [Suspect]
     Indication: PARKINSON'S DISEASE
     Route: 048
     Dates: start: 20100301
  2. MADOPAR [Concomitant]
     Dates: end: 20101101
  3. COMTAN [Concomitant]
     Dates: end: 20101101
  4. SINEMET [Concomitant]

REACTIONS (6)
  - LIMB DISCOMFORT [None]
  - PARKINSONISM [None]
  - MEDICATION RESIDUE [None]
  - ABNORMAL FAECES [None]
  - DRUG INEFFECTIVE [None]
  - PAIN IN EXTREMITY [None]
